FAERS Safety Report 15089862 (Version 3)
Quarter: 2018Q4

REPORT INFORMATION
  Report Type: Report from Study
  Country: CA (occurrence: CA)
  Receive Date: 20180629
  Receipt Date: 20181005
  Transmission Date: 20190204
  Serious: Yes (Other)
  Sender: FDA-Public Use
  Company Number: PHHY2018CA030430

PATIENT
  Age: 76 Year
  Sex: Female

DRUGS (3)
  1. ENTRESTO [Suspect]
     Active Substance: SACUBITRIL\VALSARTAN
     Indication: CARDIAC FAILURE
     Dosage: 1 DF (49MG SACUBITRIL/51 MG VALSARTAN), UNK
     Route: 048
     Dates: start: 20180420
  2. ENTRESTO [Suspect]
     Active Substance: SACUBITRIL\VALSARTAN
     Dosage: 1 DF (49MG SACUBITRIL/51 MG VALSARTAN), BID
     Route: 048
     Dates: start: 20180927
  3. THYROID STIMULATING HORMONE [Concomitant]
     Indication: PRODUCT USED FOR UNKNOWN INDICATION
     Dosage: 8947 OT, UNK
     Route: 065

REACTIONS (4)
  - Vertigo [Unknown]
  - Hip fracture [Unknown]
  - Dizziness [Unknown]
  - Fall [Unknown]

NARRATIVE: CASE EVENT DATE: 20180430
